FAERS Safety Report 8829257 (Version 1)
Quarter: 2012Q4

REPORT INFORMATION
  Report Type: 
  Country: US (occurrence: US)
  Receive Date: 20121009
  Receipt Date: 20121009
  Transmission Date: 20130627
  Serious: Yes (Hospitalization, Other)
  Sender: FDA-Public Use
  Company Number: US-AMGEN-USASP2012063039

PATIENT
  Age: 76 Year
  Sex: Female

DRUGS (1)
  1. ENBREL [Suspect]
     Indication: PSORIATIC ARTHROPATHY
     Dosage: 50 mg, qwk
     Dates: start: 20090301

REACTIONS (5)
  - Hip arthroplasty [Recovered/Resolved]
  - Groin pain [Recovered/Resolved]
  - Walking aid user [Recovered/Resolved]
  - Osteoarthritis [Recovered/Resolved]
  - Psoriasis [Not Recovered/Not Resolved]
